FAERS Safety Report 16760051 (Version 7)
Quarter: 2020Q3

REPORT INFORMATION
  Report Type: Spontaneous
  Country: US (occurrence: US)
  Receive Date: 20190830
  Receipt Date: 20200707
  Transmission Date: 20201102
  Serious: No
  Sender: FDA-Public Use
  Company Number: US-PFIZER INC-2017450884

PATIENT
  Age: 78 Year
  Sex: Female
  Weight: 72 kg

DRUGS (7)
  1. ALBUTEROL SULFATE. [Concomitant]
     Active Substance: ALBUTEROL SULFATE
     Dosage: UNK, AS NEEDED [HFA 108 (90 BASE) MCG/ACT] (2 PUFFS AS NEEDED INHALATION EVERY 4 HRS)
     Route: 055
  2. LYRICA [Suspect]
     Active Substance: PREGABALIN
     Indication: LUMBAR RADICULOPATHY
     Dosage: 75 MG, 2X/DAY (30 DAYS)
     Route: 048
     Dates: start: 20170913
  3. ROPINIROLE HCL [Concomitant]
     Active Substance: ROPINIROLE HYDROCHLORIDE
     Dosage: 0.25 MG, 3X/DAY
     Route: 048
  4. MS CONTIN [Concomitant]
     Active Substance: MORPHINE SULFATE
     Indication: PAIN
     Dosage: 30 MG, AS NEEDED  (1?2 TABLET ORALLY EVERY 12 HRS)
     Route: 048
     Dates: start: 20170921
  5. FLEXERIL [Concomitant]
     Active Substance: CYCLOBENZAPRINE HYDROCHLORIDE
     Dosage: 10 MG, AS NEEDED (1 TABLET AS NEEDED ORALLY THREE TIMES A DAY)
     Route: 048
     Dates: start: 20170531
  6. LYRICA [Suspect]
     Active Substance: PREGABALIN
     Indication: POLYNEUROPATHY
     Dosage: 75 MG, 2X/DAY (90 DAYS)
     Route: 048
  7. FERROUS SULFATE. [Concomitant]
     Active Substance: FERROUS SULFATE
     Dosage: 325 MG, 1X/DAY (1 TABLET ORALLY QD)
     Route: 048
     Dates: start: 20170726

REACTIONS (3)
  - Gait inability [Unknown]
  - Dyspnoea [Unknown]
  - Asthenia [Unknown]
